FAERS Safety Report 7940943-5 (Version None)
Quarter: 2011Q4

REPORT INFORMATION
  Report Type: 
  Country: None (occurrence: None)
  Receive Date: 20111128
  Receipt Date: 20111116
  Transmission Date: 20120403
  Serious: Yes (Other)
  Sender: FDA-Public Use
  Company Number: JP-JNJFOC-20110510174

PATIENT
  Age: 70 Year
  Sex: Female

DRUGS (1)
  1. ITRACONAZOLE [Suspect]
     Indication: FUNGAL INFECTION
     Route: 041
     Dates: start: 20110513, end: 20110527

REACTIONS (2)
  - HAEMATURIA [None]
  - CALCULUS URETERIC [None]
